FAERS Safety Report 6489737-0 (Version None)
Quarter: 2009Q4

REPORT INFORMATION
  Report Type: 
  Country: None (occurrence: None)
  Receive Date: 20091207
  Receipt Date: 20091123
  Transmission Date: 20100525
  Serious: Yes (Death)
  Sender: FDA-Public Use
  Company Number: 2009AC000053

PATIENT
  Age: 97 Year
  Sex: Male

DRUGS (13)
  1. DIGOXIN [Suspect]
     Dosage: 0.125 MG;QD;PO
     Route: 048
  2. POTASSIUM [Concomitant]
  3. PENTOXIFYLLINE [Concomitant]
  4. HUMIBID [Concomitant]
  5. LEVOXYL [Concomitant]
  6. LASIX [Concomitant]
  7. PROSCAR [Concomitant]
  8. FLOMAX [Concomitant]
  9. COREG [Concomitant]
  10. COUMADIN [Concomitant]
  11. DITROPAN XL [Concomitant]
  12. AZMACORT [Concomitant]
  13. HYDROCORTISONE [Concomitant]

REACTIONS (32)
  - AORTIC VALVE STENOSIS [None]
  - ARTERIOSCLEROSIS [None]
  - ATELECTASIS [None]
  - ATRIAL FIBRILLATION [None]
  - ATRIAL PRESSURE INCREASED [None]
  - BLOOD URINE PRESENT [None]
  - CALCINOSIS [None]
  - CARDIAC FAILURE CONGESTIVE [None]
  - CARDIO-RESPIRATORY ARREST [None]
  - CARDIOMEGALY [None]
  - DEMENTIA [None]
  - DILATATION ATRIAL [None]
  - ECONOMIC PROBLEM [None]
  - EJECTION FRACTION DECREASED [None]
  - GRANULOMA [None]
  - GRANULOMATOUS LIVER DISEASE [None]
  - HAEMOPTYSIS [None]
  - HEPATIC CALCIFICATION [None]
  - LEFT VENTRICULAR HYPERTROPHY [None]
  - MITRAL VALVE INCOMPETENCE [None]
  - MULTIPLE INJURIES [None]
  - PROTEIN URINE PRESENT [None]
  - PULMONARY ARTERIAL PRESSURE INCREASED [None]
  - RENAL DISORDER [None]
  - SPLENIC CALCIFICATION [None]
  - SPLENIC GRANULOMA [None]
  - SURGERY [None]
  - TACHYCARDIA [None]
  - UPPER RESPIRATORY TRACT INFECTION [None]
  - URINARY SEDIMENT PRESENT [None]
  - URINE LEUKOCYTE ESTERASE POSITIVE [None]
  - WHITE BLOOD CELLS URINE POSITIVE [None]
